FAERS Safety Report 20773442 (Version 1)
Quarter: 2022Q2

REPORT INFORMATION
  Report Type: Spontaneous
  Country: US (occurrence: None)
  Receive Date: 20220430
  Receipt Date: 20220430
  Transmission Date: 20220721
  Serious: No
  Sender: FDA-Public Use
  Company Number: None

PATIENT
  Age: 69 Year
  Sex: Female
  Weight: 82.6 kg

DRUGS (2)
  1. SPRYCEL [Suspect]
     Active Substance: DASATINIB
     Dates: end: 20220422
  2. PREDNISONE [Suspect]
     Active Substance: PREDNISONE
     Dates: end: 20220422

REACTIONS (3)
  - Body temperature increased [None]
  - Neutrophil count decreased [None]
  - Streptococcus test positive [None]

NARRATIVE: CASE EVENT DATE: 20220422
